FAERS Safety Report 6100765-7 (Version None)
Quarter: 2009Q1

REPORT INFORMATION
  Report Type: 
  Country: None (occurrence: None)
  Receive Date: 20090303
  Receipt Date: 20090223
  Transmission Date: 20090719
  Serious: Yes (Other)
  Sender: FDA-Public Use
  Company Number: US-GENENTECH-278134

PATIENT

DRUGS (1)
  1. RITUXAN [Suspect]
     Indication: NEOPLASM MALIGNANT
     Route: 042

REACTIONS (1)
  - LOSS OF CONSCIOUSNESS [None]
